FAERS Safety Report 14799934 (Version 1)
Quarter: 2018Q2

REPORT INFORMATION
  Report Type: Spontaneous
  Country: US (occurrence: US)
  Receive Date: 20180424
  Receipt Date: 20180424
  Transmission Date: 20180711
  Serious: No
  Sender: FDA-Public Use
  Company Number: US-GLAXOSMITHKLINE-US2018069557

PATIENT
  Sex: Female

DRUGS (1)
  1. BREO ELLIPTA [Suspect]
     Active Substance: FLUTICASONE FUROATE\VILANTEROL TRIFENATATE
     Indication: CHRONIC OBSTRUCTIVE PULMONARY DISEASE
     Dosage: 1 PUFF(S), UNK
     Route: 055

REACTIONS (6)
  - Dry mouth [Not Recovered/Not Resolved]
  - Wrong technique in device usage process [Unknown]
  - Drug dose omission [Unknown]
  - Device difficult to use [Unknown]
  - Dyspnoea [Recovering/Resolving]
  - Cough [Recovered/Resolved]
